FAERS Safety Report 8239529-7 (Version None)
Quarter: 2012Q1

REPORT INFORMATION
  Report Type: 
  Country: None (occurrence: None)
  Receive Date: 20120328
  Receipt Date: 20120323
  Transmission Date: 20120608
  Serious: No
  Sender: FDA-Public Use
  Company Number: US-PFIZER INC-2012076083

PATIENT
  Sex: Female
  Weight: 52.154 kg

DRUGS (5)
  1. LYRICA [Suspect]
     Indication: MIGRAINE
     Dosage: 75 MG, TWO TIMES A DAY ON EVERY OTHER DAY
     Route: 048
     Dates: start: 20100101
  2. FIORICET [Suspect]
     Indication: MIGRAINE
     Dosage: UNK, ALTERNATE DAY
     Dates: start: 20060101
  3. CRESTOR [Concomitant]
     Indication: BLOOD CHOLESTEROL INCREASED
     Dosage: 5 MG, DAILY
  4. CODEINE SULFATE [Suspect]
     Indication: MIGRAINE
     Dosage: 30 MG, ALTERNATE DAY
     Dates: start: 20060101
  5. LEVOTHYROXINE [Concomitant]
     Indication: THYROID DISORDER
     Dosage: 50 UG, DAILY

REACTIONS (2)
  - DYSARTHRIA [None]
  - THINKING ABNORMAL [None]
